FAERS Safety Report 4379561-7 (Version None)
Quarter: 2004Q2

REPORT INFORMATION
  Report Type: 
  Country: None (occurrence: None)
  Receive Date: 20040614
  Receipt Date: 20040607
  Transmission Date: 20050107
  Serious: Yes (Death, Hospitalization)
  Sender: FDA-Public Use
  Company Number: 2004US000634

PATIENT
  Age: 54 Year
  Sex: Female

DRUGS (3)
  1. PROGRAF [Suspect]
     Indication: RENAL TRANSPLANT
     Dosage: 9.00 MG/D
  2. MYCOPHENOLATE MOFETIL (MYCOFENOLATE MOFETIL) [Concomitant]
  3. PREDNISONE TAB [Concomitant]

REACTIONS (6)
  - BRAIN OEDEMA [None]
  - BRAIN STEM SYNDROME [None]
  - ENCEPHALITIS [None]
  - PLEOCYTOSIS [None]
  - POST PROCEDURAL COMPLICATION [None]
  - WEST NILE VIRAL INFECTION [None]
